FAERS Safety Report 13809485 (Version 2)
Quarter: 2017Q3

REPORT INFORMATION
  Report Type: Report from Study
  Country: US (occurrence: US)
  Receive Date: 20170728
  Receipt Date: 20170729
  Transmission Date: 20171127
  Serious: No
  Sender: FDA-Public Use
  Company Number: US-AMGEN-USASL2017078925

PATIENT
  Age: 62 Year
  Sex: Male

DRUGS (2)
  1. INSULIN [Concomitant]
     Active Substance: INSULIN NOS
     Indication: DIABETES MELLITUS
  2. REPATHA [Suspect]
     Active Substance: EVOLOCUMAB
     Indication: BLOOD CHOLESTEROL INCREASED
     Dosage: 140 MG, Q2WK
     Route: 065
     Dates: start: 2017, end: 201705

REACTIONS (8)
  - Peripheral swelling [Unknown]
  - Headache [Unknown]
  - Asthenia [Unknown]
  - Arthralgia [Unknown]
  - Blood glucose decreased [Unknown]
  - Pain [Not Recovered/Not Resolved]
  - Influenza like illness [Recovered/Resolved]
  - Loss of personal independence in daily activities [Unknown]

NARRATIVE: CASE EVENT DATE: 2017
